FAERS Safety Report 10417580 (Version 1)
Quarter: 2014Q2

REPORT INFORMATION
  Report Type: Spontaneous
  Country: US (occurrence: None)
  Receive Date: 20140609
  Receipt Date: 20140609
  Transmission Date: 20141212
  Serious: No
  Sender: FDA-Public Use
  Company Number: 2014TUS001468

PATIENT
  Age: 60 Year
  Sex: Female
  Weight: 81 kg

DRUGS (2)
  1. BRINTELLIX [Suspect]
     Indication: DEPRESSION
     Route: 048
     Dates: start: 20140220, end: 20140224
  2. IMITREX [Concomitant]

REACTIONS (6)
  - Muscle tightness [None]
  - Pain [None]
  - Nasal congestion [None]
  - Migraine [None]
  - Condition aggravated [None]
  - Pruritus [None]
